FAERS Safety Report 9747661 (Version 1)
Quarter: 2013Q4

REPORT INFORMATION
  Report Type: Spontaneous
  Country: US (occurrence: None)
  Receive Date: 20131211
  Receipt Date: 20131211
  Transmission Date: 20140711
  Serious: Yes (Disabling)
  Sender: FDA-Public Use
  Company Number: None

PATIENT
  Sex: Male

DRUGS (19)
  1. LEVOTHYROXINE [Suspect]
     Indication: THYROID DISORDER
     Route: 048
     Dates: start: 20130514, end: 20130918
  2. XALACYCLOVIR [Concomitant]
  3. DESOXIMETASONE CREAM [Concomitant]
  4. DESOXIMETAZONE OINTMENT [Concomitant]
  5. BENADRYL [Concomitant]
  6. VITAMIN B 12 [Concomitant]
  7. OMEPRAZOLE [Concomitant]
  8. NADOLOL [Concomitant]
  9. ATORVASTATIN [Concomitant]
  10. SYNTHROID [Concomitant]
  11. BENAZEPRIL [Concomitant]
  12. FUROSEMIDE [Concomitant]
  13. POTASSIUM [Concomitant]
  14. VITAMIN E [Concomitant]
  15. VITAMIN C [Concomitant]
  16. FOLIC ACID [Concomitant]
  17. ASPIRIN [Concomitant]
  18. SENIOR MULTI-VTIAMIN [Concomitant]
  19. VITAMIN D-2000 [Concomitant]

REACTIONS (1)
  - Rash [None]
